FAERS Safety Report 23872328 (Version 1)
Quarter: 2024Q2

REPORT INFORMATION
  Report Type: Report from Study
  Country: GB (occurrence: GB)
  Receive Date: 20240520
  Receipt Date: 20240520
  Transmission Date: 20240716
  Serious: Yes (Hospitalization)
  Sender: FDA-Public Use
  Company Number: GB-AUROBINDO-AUR-APL-2024-023361

PATIENT
  Age: 23 Year
  Sex: Female

DRUGS (10)
  1. OLANZAPINE [Suspect]
     Active Substance: OLANZAPINE
     Indication: Schizophrenia
     Dosage: UNK
     Route: 065
     Dates: start: 201007
  2. OLANZAPINE [Suspect]
     Active Substance: OLANZAPINE
     Indication: Schizoaffective disorder depressive type
  3. OLANZAPINE [Suspect]
     Active Substance: OLANZAPINE
     Indication: Depression
  4. RISPERIDONE [Suspect]
     Active Substance: RISPERIDONE
     Indication: Schizophrenia
     Dosage: UNK
     Route: 065
  5. RISPERIDONE [Suspect]
     Active Substance: RISPERIDONE
     Indication: Schizoaffective disorder depressive type
  6. MELPERONE [Concomitant]
     Active Substance: MELPERONE
     Indication: Schizophrenia
     Dosage: UNK
     Route: 065
  7. MELPERONE [Concomitant]
     Active Substance: MELPERONE
     Indication: Schizoaffective disorder depressive type
  8. MELPERONE [Concomitant]
     Active Substance: MELPERONE
     Indication: Depression
  9. RISPERDAL CONSTA [Concomitant]
     Active Substance: RISPERIDONE
     Indication: Schizophrenia
     Dosage: UNK
     Route: 065
     Dates: start: 201007
  10. RISPERDAL CONSTA [Concomitant]
     Active Substance: RISPERIDONE
     Indication: Schizoaffective disorder depressive type

REACTIONS (1)
  - Drug ineffective [Unknown]
